FAERS Safety Report 12108345 (Version 2)
Quarter: 2016Q1

REPORT INFORMATION
  Report Type: Spontaneous
  Country: KR (occurrence: KR)
  Receive Date: 20160224
  Receipt Date: 20160226
  Transmission Date: 20160526
  Serious: Yes (Other)
  Sender: FDA-Public Use
  Company Number: KR-AMGEN-KORCT2016021168

PATIENT
  Age: 70 Year
  Sex: Male
  Weight: 69 kg

DRUGS (11)
  1. CYCLOPHOSPHAMIDE. [Concomitant]
     Active Substance: CYCLOPHOSPHAMIDE
     Dosage: 1350 MG, UNK
     Route: 042
     Dates: start: 20150909, end: 20150909
  2. VINCRISTINE [Concomitant]
     Active Substance: VINCRISTINE
     Dosage: 2.5 MG, UNK
     Route: 042
     Dates: start: 20150909, end: 20150909
  3. DOXORUBICIN [Concomitant]
     Active Substance: DOXORUBICIN
     Dosage: 90 MG, UNK
     Route: 042
     Dates: start: 20150909, end: 20150909
  4. PREDNISOLONE. [Concomitant]
     Active Substance: PREDNISOLONE
     Dosage: 180 MG, UNK
     Route: 048
     Dates: start: 20150909, end: 20150909
  5. EMEND [Concomitant]
     Active Substance: APREPITANT
     Dosage: 80 MG, UNK
     Route: 048
     Dates: start: 20150911, end: 20151115
  6. PREDNISOLONE. [Concomitant]
     Active Substance: PREDNISOLONE
     Dosage: 100 MG, UNK
     Route: 048
     Dates: start: 20150911, end: 20151115
  7. LANSTON [Concomitant]
     Active Substance: LANSOPRAZOLE
     Dosage: 15 MG, UNK
     Route: 048
     Dates: start: 20150911, end: 20151115
  8. G-LASTA [Suspect]
     Active Substance: PEGFILGRASTIM
     Indication: FEBRILE NEUTROPENIA
     Dosage: 6 MG, 1X/3WEEKS
     Route: 058
     Dates: start: 20150911, end: 20150911
  9. RITUXIMAB [Concomitant]
     Active Substance: RITUXIMAB
     Dosage: 675 MG, UNK
     Route: 042
     Dates: start: 20150909, end: 20150909
  10. FERBON [Concomitant]
     Dosage: 20 MG, UNK
     Route: 048
     Dates: start: 20150911, end: 20151115
  11. GANAKHAN [Concomitant]
     Dosage: 150 MG, UNK
     Route: 048
     Dates: start: 20150911, end: 20150911

REACTIONS (1)
  - Neutropenia [Recovered/Resolved]

NARRATIVE: CASE EVENT DATE: 20150917
